FAERS Safety Report 4480399-0 (Version None)
Quarter: 2004Q4

REPORT INFORMATION
  Report Type: 
  Country: None (occurrence: None)
  Receive Date: 20041018
  Receipt Date: 20041005
  Transmission Date: 20050328
  Serious: Yes (Hospitalization)
  Sender: FDA-Public Use
  Company Number: 2004075078

PATIENT
  Age: 87 Year
  Sex: Female
  Weight: 68 kg

DRUGS (11)
  1. NORVASC [Suspect]
     Indication: PULMONARY HYPERTENSION
     Dosage: 10 MG (10 MG, 1 IN 1 D), ORAL
     Route: 048
  2. XIPAMIDE (XIPAMIDE) [Suspect]
     Indication: PULMONARY HYPERTENSION
     Dosage: 20 MG (20 MG, 1 IN 1 D), ORAL
     Route: 048
  3. DIGITOXIN TAB [Suspect]
     Indication: ATRIAL FIBRILLATION
     Dosage: 0.07 MG (0.07 MG, 1 IN 1 D), ORAL
     Route: 048
  4. RANITIDINE HYDROCHLORIDE [Suspect]
     Indication: PROPHYLAXIS AGAINST GASTROINTESTINAL ULCER
     Dosage: 150 MG (75 MG, 2 IN IN 1 D), ORAL
     Route: 048
     Dates: end: 20040417
  5. AMITRIPTYLINE HYDROCHLORIDE [Suspect]
     Indication: DEPRESSION
     Dosage: 50 MG (25 MG, 2 IN 1 D), ORAL
     Route: 048
     Dates: start: 20020101, end: 20040417
  6. SOTALOL HCL [Suspect]
     Indication: ATRIAL FIBRILLATION
     Dosage: 80 MG (25 MG, 2 IN 1 D), ORAL
     Route: 048
     Dates: end: 20040417
  7. METAMIZOLE SODIUM (METAMIZOLE SODIUM) [Concomitant]
  8. GLYBURIDE [Concomitant]
  9. INSULIN GLARGINE (INSULIN GLARGINE) [Concomitant]
  10. TORSEMIDE [Concomitant]
  11. ALLOPURINOL [Concomitant]

REACTIONS (6)
  - BLOOD GLUCOSE INCREASED [None]
  - BRADYARRHYTHMIA [None]
  - DRUG INTERACTION [None]
  - ELECTROCARDIOGRAM QT PROLONGED [None]
  - SYNCOPE [None]
  - VENTRICULAR TACHYCARDIA [None]
